FAERS Safety Report 4455808-3 (Version None)
Quarter: 2004Q3

REPORT INFORMATION
  Report Type: 
  Country: None (occurrence: None)
  Receive Date: 20040917
  Receipt Date: 20040901
  Transmission Date: 20050211
  Serious: Yes (Death)
  Sender: FDA-Public Use
  Company Number: EWS040940457

PATIENT
  Age: 35 Year
  Sex: Male

DRUGS (4)
  1. ZYPREXA [Suspect]
     Dates: start: 20020601, end: 20040101
  2. CARBAMAZEPINE [Concomitant]
  3. FLUOXETINE [Concomitant]
  4. LEVOMEPROMAZINE [Concomitant]

REACTIONS (2)
  - ANTICONVULSANT DRUG LEVEL INCREASED [None]
  - DRUG LEVEL INCREASED [None]
